FAERS Safety Report 5825500-9 (Version None)
Quarter: 2008Q3

REPORT INFORMATION
  Report Type: 
  Country: None (occurrence: None)
  Receive Date: 20080722
  Receipt Date: 20070703
  Transmission Date: 20090109
  Serious: Yes (Hospitalization)
  Sender: FDA-Public Use
  Company Number: 2007BI014130

PATIENT
  Sex: Female

DRUGS (1)
  1. AVONEX [Suspect]
     Dates: start: 20020101, end: 20020101

REACTIONS (4)
  - AMNESIA [None]
  - BIPOLAR I DISORDER [None]
  - DEAFNESS [None]
  - MULTIPLE SCLEROSIS RELAPSE [None]
